FAERS Safety Report 23472220 (Version 1)
Quarter: 2024Q1

REPORT INFORMATION
  Report Type: Spontaneous
  Country: US (occurrence: None)
  Receive Date: 20240202
  Receipt Date: 20240202
  Transmission Date: 20240409
  Serious: Yes (Life-Threatening)
  Sender: FDA-Public Use
  Company Number: None

PATIENT
  Age: 48 Year
  Sex: Female
  Weight: 121.9 kg

DRUGS (1)
  1. MONOFERRIC [Suspect]
     Active Substance: FERRIC DERISOMALTOSE
     Indication: Iron deficiency anaemia
     Dates: start: 20240201, end: 20240201

REACTIONS (6)
  - Dyspnoea [None]
  - Aspiration [None]
  - Back pain [None]
  - Burning sensation [None]
  - Flushing [None]
  - Rash [None]

NARRATIVE: CASE EVENT DATE: 20240201
